FAERS Safety Report 16256570 (Version 1)
Quarter: 2019Q2

REPORT INFORMATION
  Report Type: Spontaneous
  Country: US (occurrence: US)
  Receive Date: 20190327
  Receipt Date: 20190327
  Transmission Date: 20190711
  Serious: No
  Sender: FDA-Public Use
  Company Number: None

PATIENT

DRUGS (3)
  1. ZOSYN [Suspect]
     Active Substance: PIPERACILLIN SODIUM\TAZOBACTAM SODIUM
  2. KETOROLAC [Suspect]
     Active Substance: KETOROLAC\KETOROLAC TROMETHAMINE
  3. VANCO [Suspect]
     Active Substance: VANCOMYCIN

REACTIONS (4)
  - Drug monitoring procedure not performed [None]
  - Drug level above therapeutic [None]
  - Drug level below therapeutic [None]
  - Acute kidney injury [None]
